FAERS Safety Report 9879030 (Version 1)
Quarter: 2014Q1

REPORT INFORMATION
  Report Type: Spontaneous
  Country: US (occurrence: US)
  Receive Date: 20140206
  Receipt Date: 20140206
  Transmission Date: 20141002
  Serious: Yes (Other)
  Sender: FDA-Public Use
  Company Number: US-PFIZER INC-2014033862

PATIENT
  Age: 71 Year
  Sex: Male
  Weight: 68.03 kg

DRUGS (2)
  1. NEURONTIN [Suspect]
     Indication: CONVULSION
     Dosage: 600 MG, 6XDAY
  2. DILANTIN [Suspect]
     Indication: CONVULSION
     Dosage: 100 MG, 5XDAY

REACTIONS (3)
  - Apnoea [Recovered/Resolved]
  - Oesophageal compression [Unknown]
  - Pulmonary mass [Unknown]
